FAERS Safety Report 5533939-4 (Version None)
Quarter: 2007Q4

REPORT INFORMATION
  Report Type: 
  Country: None (occurrence: None)
  Receive Date: 20071129
  Receipt Date: 20071121
  Transmission Date: 20080405
  Serious: Yes (Hospitalization)
  Sender: FDA-Public Use
  Company Number: 144-C5013-07111206

PATIENT
  Sex: Male

DRUGS (4)
  1. CC-5013 (LENALIDOMIDE) (CAPSULE) [Suspect]
     Indication: MULTIPLE MYELOMA
     Dosage: 25 MG, DAILY, ORAL, 25 MG, DAILY; ORAL
     Route: 048
     Dates: start: 20070801, end: 20070901
  2. CC-5013 (LENALIDOMIDE) (CAPSULE) [Suspect]
     Indication: MULTIPLE MYELOMA
     Dosage: 25 MG, DAILY, ORAL, 25 MG, DAILY; ORAL
     Route: 048
     Dates: end: 20071001
  3. DEXAMETHASONE TAB [Suspect]
     Indication: MULTIPLE MYELOMA
     Dosage: 40 MG, ONCE PER WEEK; UNKNOWN, 40 MG, ONCE PER WEEK;
     Dates: end: 20070901
  4. DEXAMETHASONE TAB [Suspect]
     Indication: MULTIPLE MYELOMA
     Dosage: 40 MG, ONCE PER WEEK; UNKNOWN, 40 MG, ONCE PER WEEK;
     Dates: start: 20071001, end: 20071001

REACTIONS (1)
  - PANCREATITIS ACUTE [None]
